FAERS Safety Report 5620887-4 (Version None)
Quarter: 2008Q1

REPORT INFORMATION
  Report Type: 
  Country: None (occurrence: None)
  Receive Date: 20080208
  Receipt Date: 20080129
  Transmission Date: 20080703
  Serious: Yes (Hospitalization, Other)
  Sender: FDA-Public Use
  Company Number: US-ABBOTT-08P-163-0437222-00

PATIENT
  Age: 35 Year
  Sex: Female

DRUGS (6)
  1. HYDROCODONE BITARTRATE [Suspect]
     Indication: HEADACHE
     Route: 048
  2. HYDROCODONE BITARTRATE [Suspect]
     Route: 048
  3. HYDROCODONE BITARTRATE [Suspect]
     Route: 048
  4. ACETAMINOPHEN [Suspect]
     Indication: HEADACHE
     Route: 048
  5. ACETAMINOPHEN [Suspect]
  6. ACETAMINOPHEN [Suspect]

REACTIONS (4)
  - DEPRESSION [None]
  - HEADACHE [None]
  - INTENTIONAL DRUG MISUSE [None]
  - MIDDLE INSOMNIA [None]
